FAERS Safety Report 25431622 (Version 1)
Quarter: 2025Q2

REPORT INFORMATION
  Report Type: Other
  Country: MX (occurrence: MX)
  Receive Date: 20250613
  Receipt Date: 20250613
  Transmission Date: 20250717
  Serious: Yes (Hospitalization, Other)
  Sender: NUVO PHARMACEUTICALS
  Company Number: MX-Nuvo Pharmaceuticals Inc-2178504

PATIENT
  Age: 51 Year
  Sex: Male

DRUGS (1)
  1. NAPROXEN [Suspect]
     Active Substance: NAPROXEN
     Indication: Myalgia
     Dates: start: 2024

REACTIONS (11)
  - Cholestatic liver injury [Recovering/Resolving]
  - Self-medication [Unknown]
  - Hepatic pain [Recovering/Resolving]
  - Hepatomegaly [Recovering/Resolving]
  - Chromaturia [Recovering/Resolving]
  - Deficiency of bile secretion [Recovering/Resolving]
  - Jaundice [Recovering/Resolving]
  - Abdominal pain upper [Recovering/Resolving]
  - Asthenia [Recovering/Resolving]
  - Hyperbilirubinaemia [Recovering/Resolving]
  - Drug-induced liver injury [Recovering/Resolving]

NARRATIVE: CASE EVENT DATE: 20240101
